FAERS Safety Report 18266504 (Version 1)
Quarter: 2020Q3

REPORT INFORMATION
  Report Type: Spontaneous
  Country: US (occurrence: US)
  Receive Date: 20200914
  Receipt Date: 20200914
  Transmission Date: 20201103
  Serious: Yes (Hospitalization, Disabling)
  Sender: FDA-Public Use
  Company Number: None

PATIENT
  Age: 68 Year
  Sex: Male
  Weight: 79 kg

DRUGS (1)
  1. REMDESIVIR. [Suspect]
     Active Substance: REMDESIVIR
     Indication: COVID-19
     Route: 041

REACTIONS (8)
  - Agitation [None]
  - Acute kidney injury [None]
  - Tremor [None]
  - Restlessness [None]
  - Drug interaction [None]
  - Unresponsive to stimuli [None]
  - Drug level increased [None]
  - Mental status changes [None]

NARRATIVE: CASE EVENT DATE: 20200908
